FAERS Safety Report 10371404 (Version 1)
Quarter: 2014Q1

REPORT INFORMATION
  Report Type: Spontaneous
  Country: US (occurrence: None)
  Receive Date: 20140306
  Receipt Date: 20140306
  Transmission Date: 20141002
  Serious: Yes (Life-Threatening)
  Sender: FDA-Public Use
  Company Number: 163-21880-13080563

PATIENT
  Age: 75 Year
  Sex: Female

DRUGS (10)
  1. REVLIMID (LENALIDOMIDE) (CAPSULES) [Suspect]
     Indication: PLASMA CELL MYELOMA
     Route: 048
     Dates: start: 20111212
  2. ASPIRIN LOW SODE )ACETYLSALICYLIC ACID) [Concomitant]
  3. ATENOLOL [Concomitant]
  4. COLACE (DOCUSATE SODIUM) [Concomitant]
  5. DIAZEPAM [Concomitant]
  6. DULCOLAX (BISACODYL) [Concomitant]
  7. FLEXERIL (CYCLOBENZAPRINE HYDROCHLORIDE) [Concomitant]
  8. LORATADINE [Concomitant]
  9. MEGESTROL ACETATE [Concomitant]
  10. HYDROCHLOROTHIAZIDE [Concomitant]

REACTIONS (2)
  - Transient ischaemic attack [None]
  - Gastrooesophageal reflux disease [None]
